FAERS Safety Report 16421758 (Version 4)
Quarter: 2019Q4

REPORT INFORMATION
  Report Type: Spontaneous
  Country: JP (occurrence: JP)
  Receive Date: 20190612
  Receipt Date: 20191003
  Transmission Date: 20200122
  Serious: Yes (Other)
  Sender: FDA-Public Use
  Company Number: JP-PFIZER INC-2019242041

PATIENT
  Age: 97 Year
  Sex: Female

DRUGS (7)
  1. ETIZOLAM [Suspect]
     Active Substance: ETIZOLAM
     Dosage: UNK
  2. BROTIZOLAM [Suspect]
     Active Substance: BROTIZOLAM
     Dosage: UNK
  3. DONEPEZIL. [Concomitant]
     Active Substance: DONEPEZIL
     Dosage: 3 MG, UNK
  4. TRICHLORMETHIAZIDE [Suspect]
     Active Substance: TRICHLORMETHIAZIDE
     Indication: HYPERTENSION
     Dosage: UNK
  5. IMIDAPRIL HYDROCHLORIDE [Suspect]
     Active Substance: IMIDAPRIL HYDROCHLORIDE
     Indication: HYPERTENSION
     Dosage: UNK
  6. RAMELTEON [Suspect]
     Active Substance: RAMELTEON
     Dosage: 4 MG, UNK
  7. AMLODIN [Suspect]
     Active Substance: AMLODIPINE BESYLATE
     Dosage: 5 MG, ONCE DAILY (QD)
     Route: 048

REACTIONS (3)
  - Fracture [Unknown]
  - Pain [Unknown]
  - Decreased appetite [Recovering/Resolving]
